FAERS Safety Report 9862852 (Version 2)
Quarter: 2014Q1

REPORT INFORMATION
  Report Type: Spontaneous
  Country: DE (occurrence: DE)
  Receive Date: 20140203
  Receipt Date: 20140319
  Transmission Date: 20141002
  Serious: Yes (Life-Threatening, Hospitalization)
  Sender: FDA-Public Use
  Company Number: PHHY2014DE009452

PATIENT
  Age: 56 Year
  Sex: Female
  Weight: 78 kg

DRUGS (6)
  1. SIGNIFOR [Suspect]
     Indication: CUSHING^S SYNDROME
     Dosage: 0.3 MG, BID
     Route: 058
     Dates: start: 20130726
  2. SIGNIFOR [Suspect]
     Dosage: 0.3 MG, TID
     Route: 048
     Dates: start: 20131023, end: 20131202
  3. RAMIPRIL HEXAL COMP [Concomitant]
     Indication: HYPERTENSION
     Dosage: 1 DF, DAILY
     Route: 048
  4. TORASEMID [Concomitant]
     Dosage: 10 MG, DAILY
     Route: 048
  5. ESOMEPRAZOL [Concomitant]
     Dosage: 40 MG, DAILY
     Route: 048
  6. DEKRISTOL [Concomitant]
     Route: 048

REACTIONS (1)
  - Type 2 diabetes mellitus [Recovered/Resolved]
